FAERS Safety Report 5169922-0 (Version None)
Quarter: 2006Q4

REPORT INFORMATION
  Report Type: 
  Country: None (occurrence: None)
  Receive Date: 20061212
  Receipt Date: 20060921
  Transmission Date: 20070319
  Serious: Yes (Hospitalization)
  Sender: FDA-Public Use
  Company Number: US-ELI_LILLY_AND_COMPANY-US200609007136

PATIENT
  Age: 53 Year
  Sex: Male
  Weight: 84.807 kg

DRUGS (4)
  1. RISPERIDONE [Concomitant]
     Dates: start: 19980101, end: 20020101
  2. CITALOPRAM HYDROBROMIDE [Concomitant]
     Dates: start: 19980101, end: 20020101
  3. PREDNISONE TAB [Concomitant]
     Dates: start: 20040101, end: 20040101
  4. ZYPREXA [Suspect]
     Dosage: UNK, UNK
     Route: 065
     Dates: start: 19990101, end: 19990101

REACTIONS (5)
  - BLOOD CHOLESTEROL ABNORMAL [None]
  - DIABETES MELLITUS [None]
  - HYPERTENSION [None]
  - METABOLIC DISORDER [None]
  - STENT PLACEMENT [None]
